FAERS Safety Report 4330564-8 (Version None)
Quarter: 2004Q1

REPORT INFORMATION
  Report Type: 
  Country: None (occurrence: None)
  Receive Date: 20040329
  Receipt Date: 20040322
  Transmission Date: 20041129
  Serious: Yes (Hospitalization)
  Sender: FDA-Public Use
  Company Number: GBWYE661324MAR04

PATIENT
  Sex: Female

DRUGS (1)
  1. TAZOCIN (PIPERACILLIN/TAZOBACTAM, INJECTION) [Suspect]
     Dosage: 4.5 MG 3X PER 1 DAY; INTRAVENOUS
     Route: 042

REACTIONS (1)
  - ACUTE PULMONARY OEDEMA [None]
